FAERS Safety Report 8623748-1 (Version None)
Quarter: 2012Q3

REPORT INFORMATION
  Report Type: 
  Country: None (occurrence: None)
  Receive Date: 20120827
  Receipt Date: 20120822
  Transmission Date: 20120928
  Serious: Yes (Death, Hospitalization)
  Sender: FDA-Public Use
  Company Number: BR-PFIZER INC-2012078404

PATIENT
  Age: 60 Year
  Sex: Male

DRUGS (3)
  1. SUTENT [Suspect]
     Indication: RENAL CANCER
     Dosage: 50 MG, 1X/DAY
     Route: 048
     Dates: start: 20120214, end: 20120805
  2. PHENOBARBITAL TAB [Concomitant]
  3. TRAMADOL HYDROCHLORIDE [Concomitant]
     Dosage: 50 MG, 2X/DAY

REACTIONS (3)
  - AGEUSIA [None]
  - PLATELET COUNT DECREASED [None]
  - DEATH [None]
